FAERS Safety Report 8174336-5 (Version None)
Quarter: 2012Q1

REPORT INFORMATION
  Report Type: 
  Country: None (occurrence: None)
  Receive Date: 20120229
  Receipt Date: 20120220
  Transmission Date: 20120608
  Serious: Yes (Hospitalization)
  Sender: FDA-Public Use
  Company Number: US-BAYER-2011-042832

PATIENT
  Age: 37 Year
  Sex: Female
  Weight: 80.272 kg

DRUGS (6)
  1. COPAXONE [Concomitant]
     Indication: MULTIPLE SCLEROSIS
     Dosage: 1 DF, QD
     Route: 040
     Dates: start: 20060201
  2. ZANAFLEX [Concomitant]
     Indication: MUSCLE SPASMS
     Dosage: 2 MG, Q4HR
     Route: 048
  3. NAPROXEN SODIUM AND PSEUDOEPHEDRINE HYDROCHLORIDE [Concomitant]
     Indication: HEADACHE
     Dates: start: 20060101, end: 20070701
  4. GABAPENTIN [Concomitant]
     Indication: MULTIPLE SCLEROSIS
     Dosage: 1 DF, TID
     Dates: start: 20060601
  5. NEURONTIN [Concomitant]
     Dosage: 300 MG, TID
     Route: 048
  6. YASMIN [Suspect]
     Indication: CONTRACEPTION
     Dosage: UNK
     Route: 048
     Dates: start: 20010621, end: 20071206

REACTIONS (12)
  - DYSPNOEA [None]
  - EMOTIONAL DISTRESS [None]
  - PAIN [None]
  - PULMONARY EMBOLISM [None]
  - CHEST PAIN [None]
  - BACK PAIN [None]
  - MUSCULOSKELETAL PAIN [None]
  - INJURY [None]
  - GENERAL PHYSICAL HEALTH DETERIORATION [None]
  - ANXIETY [None]
  - FATIGUE [None]
  - MEDICAL DIET [None]
